FAERS Safety Report 5754921-8 (Version None)
Quarter: 2008Q2

REPORT INFORMATION
  Report Type: 
  Country: None (occurrence: None)
  Receive Date: 20080527
  Receipt Date: 20080513
  Transmission Date: 20081010
  Serious: Yes (Hospitalization)
  Sender: FDA-Public Use
  Company Number: FABR-1000070

PATIENT
  Age: 48 Year
  Sex: Male
  Weight: 93 kg

DRUGS (3)
  1. FABRAZYME [Suspect]
     Indication: FABRY'S DISEASE
     Dosage: 95 MG, Q2W, INTRAVENOUS
     Route: 042
     Dates: start: 20050707
  2. FABRAZYME [Suspect]
  3. AMBIEN CR [Concomitant]

REACTIONS (4)
  - CELLULITIS [None]
  - OEDEMA PERIPHERAL [None]
  - PYREXIA [None]
  - VASCULITIS [None]
